FAERS Safety Report 9915669 (Version 2)
Quarter: 2014Q2

REPORT INFORMATION
  Report Type: Spontaneous
  Country: US (occurrence: US)
  Receive Date: 20140221
  Receipt Date: 20140508
  Transmission Date: 20141212
  Serious: No
  Sender: FDA-Public Use
  Company Number: US-009507513-1402USA003761

PATIENT
  Age: 70 Year
  Sex: Female

DRUGS (9)
  1. JANUVIA [Suspect]
     Indication: TYPE 2 DIABETES MELLITUS
     Dosage: 100 MG, DAILY
     Route: 048
     Dates: start: 201312
  2. METFORMIN [Suspect]
     Dosage: TRADE FORM
     Dates: end: 20140130
  3. METFORMIN [Suspect]
     Dosage: GENERIC FORM
     Dates: start: 20140130
  4. GLYBURIDE [Suspect]
     Dosage: TRADE FORM
     Dates: end: 20140130
  5. GLYBURIDE [Suspect]
     Dosage: GENERIC FORM
     Dates: start: 20140130
  6. METOPROLOL [Concomitant]
     Dosage: UNK
  7. AMLODIPINE BESYLATE [Concomitant]
  8. HYDROCHLOROTHIAZIDE [Concomitant]
  9. BENAZEPRIL HYDROCHLORIDE [Concomitant]

REACTIONS (3)
  - Dizziness [Recovered/Resolved]
  - Blood glucose increased [Recovering/Resolving]
  - Drug dose omission [Unknown]
